FAERS Safety Report 6604838-1 (Version None)
Quarter: 2010Q1

REPORT INFORMATION
  Report Type: 
  Country: None (occurrence: None)
  Receive Date: 20100226
  Receipt Date: 20100223
  Transmission Date: 20100710
  Serious: Yes (Death)
  Sender: FDA-Public Use
  Company Number: PL-JNJFOC-20100210720

PATIENT
  Age: 27 Year
  Sex: Male

DRUGS (5)
  1. CAELYX [Suspect]
     Indication: LYMPHOMA
     Route: 042
  2. CYCLOPHOSPHAMIDE [Suspect]
     Indication: LYMPHOMA
     Route: 042
  3. VINCRISTINE [Suspect]
     Indication: LYMPHOMA
     Route: 042
  4. PREDNISONE [Suspect]
     Indication: LYMPHOMA
     Route: 042
  5. RITUXIMAB [Suspect]
     Indication: LYMPHOMA
     Route: 065

REACTIONS (5)
  - HEPATIC ENCEPHALOPATHY [None]
  - HEPATITIS B [None]
  - HEPATITIS FULMINANT [None]
  - OFF LABEL USE [None]
  - RENAL FAILURE [None]
